FAERS Safety Report 24927061 (Version 1)
Quarter: 2025Q1

REPORT INFORMATION
  Report Type: Spontaneous
  Country: AU (occurrence: AU)
  Receive Date: 20250205
  Receipt Date: 20250205
  Transmission Date: 20250409
  Serious: Yes (Other)
  Sender: CELLTRION
  Company Number: AU-CELLTRION INC.-2025AU003108

PATIENT

DRUGS (3)
  1. RITUXIMAB [Suspect]
     Active Substance: RITUXIMAB
     Indication: Follicular lymphoma
     Dosage: 375 MG/M2, EVERY 2 WEEKS FOR FOUR CYCLES
     Route: 042
  2. RITUXIMAB [Suspect]
     Active Substance: RITUXIMAB
     Route: 042
  3. NIVOLUMAB [Suspect]
     Active Substance: NIVOLUMAB
     Indication: Follicular lymphoma
     Dosage: PRIMING 240 MG INTRAVENOUSLY (IV) EVERY TWO WEEKS FOR FOUR CYCLES
     Route: 042

REACTIONS (3)
  - Hepatitis [Unknown]
  - Respiratory tract infection [Unknown]
  - Product use issue [Unknown]
